FAERS Safety Report 22102281 (Version 1)
Quarter: 2023Q1

REPORT INFORMATION
  Report Type: Spontaneous
  Country: JP (occurrence: JP)
  Receive Date: 20230316
  Receipt Date: 20230316
  Transmission Date: 20230418
  Serious: Yes (Hospitalization)
  Sender: FDA-Public Use
  Company Number: JP-MYE-2023M1027186AA

PATIENT
  Age: 84 Year
  Sex: Female

DRUGS (1)
  1. ACETAMINOPHEN [Suspect]
     Active Substance: ACETAMINOPHEN
     Indication: Back pain
     Dosage: 1500 MILLIGRAM, QD
     Route: 065

REACTIONS (3)
  - Acute kidney injury [Recovering/Resolving]
  - Nephritis allergic [Recovering/Resolving]
  - Tubulointerstitial nephritis [Recovering/Resolving]
